FAERS Safety Report 4484503-X (Version None)
Quarter: 2004Q3

REPORT INFORMATION
  Report Type: 
  Country: None (occurrence: None)
  Receive Date: 20040921
  Receipt Date: 20040105
  Transmission Date: 20050211
  Serious: Yes (Hospitalization)
  Sender: FDA-Public Use
  Company Number: 163-20785-04010174

PATIENT
  Age: 72 Year
  Sex: Female

DRUGS (8)
  1. THALOMID [Suspect]
     Indication: METASTATIC MALIGNANT MELANOMA
     Dosage: 200 MG, DAILY, ORAL
     Route: 048
     Dates: start: 20030107, end: 20031027
  2. POTASSIUM (POTASSIUM) [Concomitant]
  3. SLO-BID [Concomitant]
  4. NEXIUM [Concomitant]
  5. ALBUTEROL [Concomitant]
  6. AZMACORT [Concomitant]
  7. NASOCORT (BUDESONIDE) [Concomitant]
  8. TEMAZEPAM [Concomitant]

REACTIONS (3)
  - BRADYCARDIA [None]
  - HAEMOPTYSIS [None]
  - PNEUMONIA [None]
